FAERS Safety Report 21447310 (Version 1)
Quarter: 2022Q4

REPORT INFORMATION
  Report Type: Spontaneous
  Country: JP (occurrence: JP)
  Receive Date: 20221012
  Receipt Date: 20221012
  Transmission Date: 20230113
  Serious: Yes (Other)
  Sender: FDA-Public Use
  Company Number: JP-TAKEDA-2022TUS060236

PATIENT
  Age: 32 Year
  Sex: Female

DRUGS (6)
  1. INTUNIV [Suspect]
     Active Substance: GUANFACINE HYDROCHLORIDE
     Indication: Attention deficit hyperactivity disorder
     Dosage: 2 MILLIGRAM, QD
     Route: 048
     Dates: start: 20220419, end: 20220425
  2. INTUNIV [Suspect]
     Active Substance: GUANFACINE HYDROCHLORIDE
     Dosage: 4 MILLIGRAM, QD
     Route: 048
     Dates: start: 20220426, end: 20220509
  3. INTUNIV [Suspect]
     Active Substance: GUANFACINE HYDROCHLORIDE
     Dosage: 2 MILLIGRAM, QD
     Route: 048
     Dates: start: 20220510, end: 20220606
  4. VALPROATE SODIUM [Concomitant]
     Active Substance: VALPROATE SODIUM
     Indication: Bipolar disorder
     Dosage: 800 MILLIGRAM, QD
     Route: 048
  5. ESZOPICLONE [Concomitant]
     Active Substance: ESZOPICLONE
     Indication: Insomnia
     Dosage: 3 MILLIGRAM, QD
     Route: 048
  6. RIVOTRIL [Concomitant]
     Active Substance: CLONAZEPAM
     Indication: Bipolar disorder
     Dosage: 1 MILLIGRAM, QD
     Route: 048
     Dates: start: 20220218

REACTIONS (3)
  - Hypotension [Recovered/Resolved]
  - Fall [Recovered/Resolved]
  - Dizziness [Recovered/Resolved]

NARRATIVE: CASE EVENT DATE: 20220426
